FAERS Safety Report 24140902 (Version 1)
Quarter: 2024Q3

REPORT INFORMATION
  Report Type: Spontaneous
  Country: US (occurrence: US)
  Receive Date: 20240726
  Receipt Date: 20240726
  Transmission Date: 20241016
  Serious: No
  Sender: BRECKENRIDGE
  Company Number: US-Breckenridge Pharmaceutical, Inc.-2159647

PATIENT
  Age: 94 Year
  Sex: Female
  Weight: 56.818 kg

DRUGS (2)
  1. DULOXETINE HYDROCHLORIDE [Suspect]
     Active Substance: DULOXETINE HYDROCHLORIDE
     Indication: Neck pain
     Route: 048
  2. TYLENOL [Concomitant]
     Active Substance: ACETAMINOPHEN

REACTIONS (2)
  - Burning sensation [Unknown]
  - Feeling hot [Unknown]
